FAERS Safety Report 8116965-0 (Version None)
Quarter: 2012Q1

REPORT INFORMATION
  Report Type: 
  Country: None (occurrence: None)
  Receive Date: 20120206
  Receipt Date: 20120127
  Transmission Date: 20120608
  Serious: Yes (Hospitalization)
  Sender: FDA-Public Use
  Company Number: AU-PURDUE-USA-2012-0080865

PATIENT
  Sex: Male
  Weight: 107 kg

DRUGS (17)
  1. ASPIRIN [Concomitant]
     Indication: PRODUCT USED FOR UNKNOWN INDICATION
     Dosage: UNK
     Dates: start: 20111231
  2. EFFEXOR [Concomitant]
     Indication: PRODUCT USED FOR UNKNOWN INDICATION
     Dosage: UNK
     Dates: start: 20000101
  3. BUPRENORPHINE HCL [Suspect]
     Dosage: 20 MCG, Q1H
     Route: 062
     Dates: start: 20111103, end: 20111108
  4. BLINDED PLACEBO TRANSDERMAL PATCH [Suspect]
     Dosage: 30 MCG, Q1H
     Route: 062
     Dates: start: 20111108, end: 20111115
  5. BLINDED PLACEBO TRANSDERMAL PATCH [Suspect]
     Dosage: 5 MCG, Q1H
     Route: 062
     Dates: start: 20111018, end: 20111028
  6. LIPITOR [Concomitant]
     Indication: PRODUCT USED FOR UNKNOWN INDICATION
     Dosage: UNK
     Dates: start: 20090101
  7. BUPRENORPHINE HCL [Suspect]
     Indication: PRODUCT USED FOR UNKNOWN INDICATION
     Dosage: 40 MCG, Q1H
     Route: 062
     Dates: start: 20111115
  8. BLINDED PLACEBO TRANSDERMAL PATCH [Suspect]
     Dosage: 20 MCG, Q1H
     Route: 062
     Dates: start: 20111103, end: 20111108
  9. LANTUS [Concomitant]
     Indication: PRODUCT USED FOR UNKNOWN INDICATION
     Dosage: UNK
     Dates: start: 20110901
  10. AVAPRO [Concomitant]
     Indication: PRODUCT USED FOR UNKNOWN INDICATION
     Dosage: UNK
     Dates: start: 20090101
  11. BUPRENORPHINE HCL [Suspect]
     Dosage: 30 MCG, Q1H
     Route: 062
     Dates: start: 20111108, end: 20111115
  12. JANUMET [Concomitant]
     Indication: PRODUCT USED FOR UNKNOWN INDICATION
     Dosage: UNK
     Dates: start: 20100101
  13. BLINDED PLACEBO TRANSDERMAL PATCH [Suspect]
     Indication: PRODUCT USED FOR UNKNOWN INDICATION
     Dosage: 40 MCG, Q1H
     Route: 062
     Dates: start: 20111115
  14. BUPRENORPHINE HCL [Suspect]
     Dosage: 10 MCG, Q1H
     Route: 062
     Dates: start: 20111028, end: 20111103
  15. BLINDED PLACEBO TRANSDERMAL PATCH [Suspect]
     Dosage: 10 MCG, Q1H
     Route: 062
     Dates: start: 20111028, end: 20111103
  16. BUPRENORPHINE HCL [Suspect]
     Dosage: 5 MCG, Q1H
     Route: 062
     Dates: start: 20111018, end: 20111028
  17. CYMBALTA [Concomitant]
     Indication: PRODUCT USED FOR UNKNOWN INDICATION
     Dosage: UNK
     Dates: start: 20110301

REACTIONS (1)
  - ANGINA UNSTABLE [None]
